FAERS Safety Report 9526489 (Version 2)
Quarter: 2014Q4

REPORT INFORMATION
  Report Type: Spontaneous
  Country: US (occurrence: US)
  Receive Date: 20130916
  Receipt Date: 20141121
  Transmission Date: 20150529
  Serious: Yes (Hospitalization, Other)
  Sender: FDA-Public Use
  Company Number: US-BAYER-2013-111190

PATIENT
  Age: 36 Year
  Sex: Female
  Weight: 90.7 kg

DRUGS (1)
  1. MIRENA [Suspect]
     Active Substance: LEVONORGESTREL
     Indication: CONTRACEPTION
     Dosage: 20 MCG/24HR, CONT
     Route: 015
     Dates: start: 20061127, end: 20091119

REACTIONS (12)
  - Device breakage [None]
  - Anxiety [None]
  - Emotional distress [None]
  - Procedural pain [None]
  - Embedded device [None]
  - Medical device discomfort [None]
  - Pain [None]
  - Device issue [None]
  - Device failure [None]
  - Medical device complication [None]
  - Injury [None]
  - Depression [None]

NARRATIVE: CASE EVENT DATE: 20091119
